FAERS Safety Report 7581802-X (Version None)
Quarter: 2011Q2

REPORT INFORMATION
  Report Type: 
  Country: None (occurrence: None)
  Receive Date: 20110629
  Receipt Date: 20110616
  Transmission Date: 20111010
  Serious: Yes (Other)
  Sender: FDA-Public Use
  Company Number: CA-GENENTECH-314171

PATIENT
  Sex: Female
  Weight: 42.63 kg

DRUGS (12)
  1. XOLAIR [Suspect]
     Indication: ASTHMA
     Dosage: 150 MG, 1/MONTH
     Route: 058
     Dates: start: 20110118, end: 20110412
  2. REACTINE (CANADA) [Concomitant]
     Indication: PRODUCT USED FOR UNKNOWN INDICATION
  3. XOLAIR [Suspect]
     Dosage: 150 MG, Q2W
     Route: 058
  4. ALVESCO [Concomitant]
     Indication: PRODUCT USED FOR UNKNOWN INDICATION
  5. PROCHLORPERAZINE [Concomitant]
     Indication: PRODUCT USED FOR UNKNOWN INDICATION
  6. PANTOPRAZOLE SODIUM [Concomitant]
     Indication: PRODUCT USED FOR UNKNOWN INDICATION
  7. SYMBICORT [Concomitant]
     Indication: PRODUCT USED FOR UNKNOWN INDICATION
  8. VENTOLIN HFA [Concomitant]
     Indication: PRODUCT USED FOR UNKNOWN INDICATION
  9. ZANTAC [Concomitant]
     Indication: PRODUCT USED FOR UNKNOWN INDICATION
  10. LOSEC (CANADA) [Concomitant]
     Indication: PRODUCT USED FOR UNKNOWN INDICATION
  11. EPIPEN [Concomitant]
     Indication: PRODUCT USED FOR UNKNOWN INDICATION
  12. MAALOX (CALCIUM CARBONATE) [Concomitant]
     Indication: PRODUCT USED FOR UNKNOWN INDICATION

REACTIONS (16)
  - VOMITING [None]
  - PYREXIA [None]
  - EATING DISORDER [None]
  - ABDOMINAL DISCOMFORT [None]
  - GASTRITIS [None]
  - ULCER [None]
  - PAIN IN EXTREMITY [None]
  - ABDOMINAL PAIN [None]
  - DEHYDRATION [None]
  - NAUSEA [None]
  - MUSCLE SPASMS [None]
  - DRUG INEFFECTIVE [None]
  - WEIGHT DECREASED [None]
  - LIP DRY [None]
  - PRURITUS [None]
  - DRY MOUTH [None]
